FAERS Safety Report 18133255 (Version 13)
Quarter: 2022Q1

REPORT INFORMATION
  Report Type: Spontaneous
  Country: JP (occurrence: JP)
  Receive Date: 20200811
  Receipt Date: 20220125
  Transmission Date: 20220424
  Serious: Yes (Hospitalization, Other)
  Sender: FDA-Public Use
  Company Number: JP-ASTELLAS-2020JP011726

PATIENT
  Age: 75 Year
  Sex: Male

DRUGS (6)
  1. XOSPATA [Suspect]
     Active Substance: GILTERITINIB
     Indication: Acute myeloid leukaemia
     Route: 048
     Dates: start: 20200706
  2. XOSPATA [Suspect]
     Active Substance: GILTERITINIB
     Route: 048
  3. XOSPATA [Suspect]
     Active Substance: GILTERITINIB
     Route: 048
     Dates: start: 20210212
  4. CELESTAMINE [Suspect]
     Active Substance: BETAMETHASONE\DEXCHLORPHENIRAMINE MALEATE
     Indication: Rash
     Dosage: UNK UNK, UNKNOWN FREQ.
     Route: 048
     Dates: end: 20210309
  5. URSODIOL [Concomitant]
     Active Substance: URSODIOL
     Indication: Hepatic function abnormal
     Dosage: UNK,UNK, UNKNOWN FREQ.
     Route: 065
  6. ITRACONAZOLE [Concomitant]
     Active Substance: ITRACONAZOLE
     Indication: Product used for unknown indication
     Dosage: UNK UNK, UNKNOWN FREQ.
     Route: 065

REACTIONS (11)
  - Haemorrhage subcutaneous [Recovered/Resolved]
  - Myelosuppression [Not Recovered/Not Resolved]
  - Constipation [Recovered/Resolved]
  - Hepatic function abnormal [Recovering/Resolving]
  - Renal impairment [Recovered/Resolved]
  - Rash [Unknown]
  - Taste disorder [Unknown]
  - Dizziness [Unknown]
  - Haematuria [Not Recovered/Not Resolved]
  - Pollakiuria [Unknown]
  - Acute myeloid leukaemia [Unknown]

NARRATIVE: CASE EVENT DATE: 20200806
